FAERS Safety Report 8070832-X (Version None)
Quarter: 2012Q1

REPORT INFORMATION
  Report Type: 
  Country: None (occurrence: None)
  Receive Date: 20120125
  Receipt Date: 20120118
  Transmission Date: 20120608
  Serious: Yes (Other)
  Sender: FDA-Public Use
  Company Number: GB-GLAXOSMITHKLINE-B0396653B

PATIENT
  Sex: Female

DRUGS (3)
  1. MALARONE [Suspect]
     Route: 064
     Dates: start: 20041201, end: 20050101
  2. HEPATYRIX [Suspect]
     Indication: PROPHYLAXIS
     Route: 064
     Dates: start: 20041207, end: 20041207
  3. STAMARIL [Suspect]
     Indication: PROPHYLAXIS
     Route: 064
     Dates: start: 20041207, end: 20041207

REACTIONS (3)
  - HIP DYSPLASIA [None]
  - FOETAL EXPOSURE DURING PREGNANCY [None]
  - BIRTH MARK [None]
